FAERS Safety Report 10928488 (Version 1)
Quarter: 2015Q1

REPORT INFORMATION
  Report Type: Spontaneous
  Country: US (occurrence: None)
  Receive Date: 20150203
  Receipt Date: 20150203
  Transmission Date: 20150721
  Serious: No
  Sender: FDA-Public Use
  Company Number: US2014GSK026639

PATIENT
  Age: 41 Year
  Sex: Female

DRUGS (7)
  1. BACTRIM [Suspect]
     Active Substance: SULFAMETHOXAZOLE\TRIMETHOPRIM
     Indication: PRODUCT USED FOR UNKNOWN INDICATION
  2. LEXAPRO [Concomitant]
     Active Substance: ESCITALOPRAM OXALATE
  3. PHENERGAN [Concomitant]
     Active Substance: PROMETHAZINE HYDROCHLORIDE
  4. TRIUMEQ [Suspect]
     Active Substance: ABACAVIR SULFATE\DOLUTEGRAVIR SODIUM\LAMIVUDINE
     Indication: HIV INFECTION
     Dosage: 1 DF, 1D
     Route: 048
     Dates: start: 20141012
  5. PENICILLIN (BENZYLPENICILLIN) (UNKNOWN) (BENZYLPENICILLIN) [Concomitant]
     Active Substance: PENICILLIN G
  6. GABAPENTIN. [Concomitant]
     Active Substance: GABAPENTIN
  7. ZOFRAN (ONDANSETRON HYDROCHLORIDE) [Concomitant]

REACTIONS (8)
  - Rash generalised [None]
  - Rash pruritic [None]
  - Exfoliative rash [None]
  - Rash erythematous [None]
  - Nausea [None]
  - Arthropod bite [None]
  - Skin swelling [None]
  - Dermatitis [None]

NARRATIVE: CASE EVENT DATE: 2014
